FAERS Safety Report 16409834 (Version 1)
Quarter: 2019Q2

REPORT INFORMATION
  Report Type: Spontaneous
  Country: US (occurrence: US)
  Receive Date: 20190502
  Receipt Date: 20190502
  Transmission Date: 20190711
  Serious: Yes (Hospitalization)
  Sender: FDA-Public Use
  Company Number: None

PATIENT
  Age: 49 Year
  Sex: Male
  Weight: 81.6 kg

DRUGS (3)
  1. GEMCITABINE HYDROCHLORIDE. [Suspect]
     Active Substance: GEMCITABINE HYDROCHLORIDE
     Dates: end: 20190415
  2. CISPLATIN. [Suspect]
     Active Substance: CISPLATIN
     Dates: end: 20190415
  3. PACLITAXEL PROTEIN-BOUND PARTICLES (ALBUMIN-BOUND) [Suspect]
     Active Substance: PACLITAXEL
     Dates: end: 20190415

REACTIONS (6)
  - Hepatic enzyme increased [None]
  - Body temperature increased [None]
  - Malaise [None]
  - Abdominal pain upper [None]
  - Abdominal pain [None]
  - Constipation [None]

NARRATIVE: CASE EVENT DATE: 20190429
